FAERS Safety Report 17105220 (Version 2)
Quarter: 2021Q3

REPORT INFORMATION
  Report Type: Spontaneous
  Country: US (occurrence: US)
  Receive Date: 20191203
  Receipt Date: 20210908
  Transmission Date: 20211014
  Serious: No
  Sender: FDA-Public Use
  Company Number: US-SA-2019SA334333

PATIENT
  Age: 38 Year
  Sex: Female

DRUGS (4)
  1. ATORVASTATIN CALCIUM. [Concomitant]
     Active Substance: ATORVASTATIN CALCIUM
     Dosage: UNK
  2. DUPIXENT [Suspect]
     Active Substance: DUPILUMAB
     Indication: DERMATITIS ATOPIC
     Dosage: 300 MG, QOW
     Route: 058
     Dates: start: 20190711
  3. DUPIXENT [Suspect]
     Active Substance: DUPILUMAB
     Indication: DRUG DEPENDENCE
  4. DUPIXENT [Suspect]
     Active Substance: DUPILUMAB
     Indication: HYPERLIPIDAEMIA

REACTIONS (4)
  - Skin exfoliation [Unknown]
  - Product use in unapproved indication [Unknown]
  - Dry skin [Unknown]
  - Skin fissures [Unknown]
